FAERS Safety Report 18401438 (Version 1)
Quarter: 2020Q4

REPORT INFORMATION
  Report Type: Spontaneous
  Country: GB (occurrence: GB)
  Receive Date: 20201019
  Receipt Date: 20201019
  Transmission Date: 20210114
  Serious: Yes (Hospitalization, Other)
  Sender: FDA-Public Use
  Company Number: GB-PERRIGO-20GB014595

PATIENT
  Age: 84 Year
  Sex: Female

DRUGS (8)
  1. PARACETAMOL [Suspect]
     Active Substance: ACETAMINOPHEN
     Indication: PRODUCT USED FOR UNKNOWN INDICATION
     Dosage: 1 G, QID
     Route: 065
  2. MIRTAZAPINE. [Concomitant]
     Active Substance: MIRTAZAPINE
     Indication: PRODUCT USED FOR UNKNOWN INDICATION
     Dosage: 45 MG, QD (AT NIGHT)
  3. APIXABAN [Concomitant]
     Active Substance: APIXABAN
     Indication: PRODUCT USED FOR UNKNOWN INDICATION
     Dosage: 2.5 MG, BID
  4. OMEPRAZOLE. [Concomitant]
     Active Substance: OMEPRAZOLE
     Indication: PRODUCT USED FOR UNKNOWN INDICATION
     Dosage: UNK UNK, QD
  5. FUROSEMIDE. [Concomitant]
     Active Substance: FUROSEMIDE
     Indication: PRODUCT USED FOR UNKNOWN INDICATION
     Dosage: 40 MG, QD (AT MORNING)
  6. DIGOXIN. [Concomitant]
     Active Substance: DIGOXIN
     Indication: PRODUCT USED FOR UNKNOWN INDICATION
     Dosage: 62.5 UG, QD (AT MORNING)
  7. BISOPROLOL [Concomitant]
     Active Substance: BISOPROLOL
     Indication: PRODUCT USED FOR UNKNOWN INDICATION
     Dosage: 2.5 MG, QD (AT MORNING)
  8. QUETIAPINE. [Concomitant]
     Active Substance: QUETIAPINE
     Indication: PRODUCT USED FOR UNKNOWN INDICATION
     Dosage: 25 MG, BID (2 TABLET)

REACTIONS (15)
  - Neutrophilia [Recovering/Resolving]
  - Urine abnormality [Recovering/Resolving]
  - Urosepsis [Recovering/Resolving]
  - Confusional state [Recovering/Resolving]
  - Blood ketone body increased [Recovering/Resolving]
  - C-reactive protein [Recovering/Resolving]
  - Emotional distress [Recovering/Resolving]
  - Metabolic acidosis [Recovering/Resolving]
  - Disorientation [Recovering/Resolving]
  - Abdominal tenderness [Recovering/Resolving]
  - Dyspnoea [Recovering/Resolving]
  - Pyroglutamic acidosis [Recovering/Resolving]
  - Acute kidney injury [Recovering/Resolving]
  - Anion gap increased [Recovering/Resolving]
  - Kussmaul respiration [Recovering/Resolving]
